FAERS Safety Report 21376301 (Version 1)
Quarter: 2022Q3

REPORT INFORMATION
  Report Type: Spontaneous
  Country: DE (occurrence: DE)
  Receive Date: 20220926
  Receipt Date: 20220926
  Transmission Date: 20221027
  Serious: Yes (Hospitalization, Other)
  Sender: FDA-Public Use
  Company Number: None

PATIENT
  Age: 58 Year
  Sex: Male
  Weight: 82 kg

DRUGS (12)
  1. VENLAFAXINE HCL [Suspect]
     Active Substance: VENLAFAXINE HYDROCHLORIDE
     Dosage: 150 MG, 1X/DAY (1-0-0-0)
  2. DULOXETINE HYDROCHLORIDE [Suspect]
     Active Substance: DULOXETINE HYDROCHLORIDE
     Dosage: 60 MG, 2X/DAY (1-1-0-0)
  3. CHOLECALCIFEROL [Concomitant]
     Active Substance: CHOLECALCIFEROL
     Dosage: 20000 IU, SCHEME
  4. MIRTAZAPINE [Concomitant]
     Active Substance: MIRTAZAPINE
     Dosage: 30 MG, 1X/DAY(0-0-1-0)
  5. LEVETIRACETAM [Concomitant]
     Active Substance: LEVETIRACETAM
     Dosage: 1000 MG, 2X/DAY (1-0-1-0)
  6. BUPRENORPHINE [Concomitant]
     Active Substance: BUPRENORPHINE
     Dosage: 20 UG, SCHEME
  7. CARBAMAZEPINE [Concomitant]
     Active Substance: CARBAMAZEPINE
     Dosage: 300 MG, 1X/DAY (0-0-1-0)
  8. PANTOPRAZOLE [Concomitant]
     Active Substance: PANTOPRAZOLE
     Dosage: 40 MG, 1X/DAY (1-0-0-0)
  9. POLYETHYLENE GLYCOL\POTASSIUM CHLORIDE\SODIUM BICARBONATE\SODIUM CHLOR [Concomitant]
     Active Substance: POLYETHYLENE GLYCOL\POTASSIUM CHLORIDE\SODIUM BICARBONATE\SODIUM CHLORIDE
     Dosage: UNK, 2X/DAY (1-1-0-0)
  10. METOCLOPRAMIDE [Concomitant]
     Active Substance: METOCLOPRAMIDE
     Dosage: 20 DROP, 3X/DAY (1-1-1-0)
  11. METAMIZOLE [Concomitant]
     Active Substance: METAMIZOLE
     Dosage: 30 DROP, 3X/DAY (1-1-1-0)
  12. AMLODIPINE [Concomitant]
     Active Substance: AMLODIPINE BESYLATE
     Dosage: 5 MG, 2X/DAY (1-0-1-0)

REACTIONS (7)
  - Systemic infection [Unknown]
  - Anaemia [Unknown]
  - Upper gastrointestinal haemorrhage [Unknown]
  - Haematemesis [Unknown]
  - Condition aggravated [Unknown]
  - Dyspnoea [Unknown]
  - General physical health deterioration [Unknown]
